FAERS Safety Report 8968777 (Version 1)
Quarter: 2012Q4

REPORT INFORMATION
  Report Type: 
  Country: US (occurrence: US)
  Receive Date: 20121218
  Receipt Date: 20121218
  Transmission Date: 20130627
  Serious: No
  Sender: FDA-Public Use
  Company Number: US-BRISTOL-MYERS SQUIBB COMPANY-16744351

PATIENT
  Age: 46 Year
  Sex: Female
  Weight: 63.04 kg

DRUGS (2)
  1. ABILIFY [Suspect]
     Indication: DEPRESSION
     Dosage: 1df=2.5 units NOS
     Dates: start: 200901
  2. ABILIFY [Suspect]
     Indication: BIPOLAR DISORDER
     Dosage: 1df=2.5 units NOS
     Dates: start: 200901

REACTIONS (1)
  - Glucose tolerance impaired [Not Recovered/Not Resolved]
